FAERS Safety Report 6582457-3 (Version None)
Quarter: 2010Q1

REPORT INFORMATION
  Report Type: 
  Country: None (occurrence: None)
  Receive Date: 20100216
  Receipt Date: 20100203
  Transmission Date: 20100710
  Serious: Yes (Hospitalization, Other)
  Sender: FDA-Public Use
  Company Number: PHEH2007US01705

PATIENT
  Sex: Male
  Weight: 76.644 kg

DRUGS (23)
  1. ZOMETA [Suspect]
     Indication: OSTEOPOROSIS
     Dosage: 4 MG, QMO
     Route: 042
     Dates: start: 20030909, end: 20060911
  2. DILACOR XR [Concomitant]
     Dosage: 180 MG, QD
  3. KEPPRA [Concomitant]
  4. LOVASTIN [Concomitant]
     Dosage: 40 MG, UNK
  5. TYLENOL W/ CODEINE [Concomitant]
  6. ZANTAC [Concomitant]
     Dosage: 150 MG, QD
  7. ZOLOFT [Concomitant]
     Dosage: UNK
     Dates: start: 20060613
  8. SERTRALINE HCL [Concomitant]
     Dosage: UNK
     Dates: start: 20060910
  9. IMMU-G [Concomitant]
  10. CENTRUM [Concomitant]
  11. ASPIRIN [Concomitant]
  12. VITAMIN C [Concomitant]
     Dosage: 500 MG, QD
  13. IBUPROFEN [Concomitant]
     Dosage: UNK MG, UNK
  14. NEURONTIN [Concomitant]
     Dosage: 600 MG, QD
  15. PREDNISONE [Concomitant]
     Dosage: 20 MG, QOD
  16. MELPHALAN HYDROCHLORIDE [Concomitant]
  17. RADIATION THERAPY [Concomitant]
  18. TRENTAL ^ALBERT-ROUSSEL^ [Concomitant]
     Dosage: 400 MG, TID
  19. FOSAMAX [Concomitant]
     Dosage: 10 MG, QD
  20. MOTRIN [Concomitant]
  21. PRAVACHOL [Concomitant]
  22. IMURAN [Concomitant]
  23. CELEBREX [Concomitant]

REACTIONS (25)
  - AMYLOIDOSIS [None]
  - ANXIETY [None]
  - ARTHRITIS [None]
  - BENIGN BONE NEOPLASM [None]
  - BENIGN PROSTATIC HYPERPLASIA [None]
  - BONE DISORDER [None]
  - CELLULITIS [None]
  - CEREBRAL ARTERIOSCLEROSIS [None]
  - CEREBROVASCULAR ACCIDENT [None]
  - DECREASED INTEREST [None]
  - DEFORMITY [None]
  - EMOTIONAL DISTRESS [None]
  - GENERAL PHYSICAL HEALTH DETERIORATION [None]
  - HAEMORRHOIDS [None]
  - HERPES ZOSTER [None]
  - HYPOPHAGIA [None]
  - ILL-DEFINED DISORDER [None]
  - ISCHAEMIA [None]
  - MUCOSAL INFLAMMATION [None]
  - ORAL TORUS [None]
  - OSTEONECROSIS [None]
  - PAIN [None]
  - SALIVARY GLAND ADENOMA [None]
  - SLEEP APNOEA SYNDROME [None]
  - TOOTH ABSCESS [None]
